FAERS Safety Report 23388783 (Version 1)
Quarter: 2024Q1

REPORT INFORMATION
  Report Type: Spontaneous
  Country: US (occurrence: None)
  Receive Date: 20240110
  Receipt Date: 20240110
  Transmission Date: 20240410
  Serious: No
  Sender: FDA-Public Use
  Company Number: None

PATIENT
  Sex: Female

DRUGS (1)
  1. TEZSPIRE [Suspect]
     Active Substance: TEZEPELUMAB-EKKO
     Indication: Asthma
     Dosage: OTHER QUANTITY : 210 MG/1.91ML;?FREQUENCY : MONTHLY;?
     Route: 058
     Dates: start: 20230210

REACTIONS (3)
  - Pulmonary oedema [None]
  - Sinusitis [None]
  - Therapy interrupted [None]
